FAERS Safety Report 19167707 (Version 1)
Quarter: 2021Q2

REPORT INFORMATION
  Report Type: Spontaneous
  Country: US (occurrence: US)
  Receive Date: 20210420
  Receipt Date: 20210420
  Transmission Date: 20210717
  Serious: No
  Sender: FDA-Public Use
  Company Number: None

PATIENT
  Age: 71 Year
  Sex: Male

DRUGS (2)
  1. METHOCARBAMOL (METHOCARBAMOL 500 MG TAB) [Suspect]
     Active Substance: METHOCARBAMOL
     Indication: HYPERTENSION
     Dates: end: 20210325
  2. METHOCARBAMOL (METHOCARBAMOL 500 MG TAB) ? [Suspect]
     Active Substance: METHOCARBAMOL
     Indication: PAIN

REACTIONS (1)
  - Angioedema [None]

NARRATIVE: CASE EVENT DATE: 20210325
